FAERS Safety Report 7132130-8 (Version None)
Quarter: 2010Q4

REPORT INFORMATION
  Report Type: 
  Country: None (occurrence: None)
  Receive Date: 20101202
  Receipt Date: 20101122
  Transmission Date: 20110411
  Serious: Yes (Hospitalization, Other)
  Sender: FDA-Public Use
  Company Number: US-AMGEN-USASP2010000509

PATIENT

DRUGS (50)
  1. NPLATE [Suspect]
     Indication: IDIOPATHIC THROMBOCYTOPENIC PURPURA
     Dosage: 80 A?G/KG, UNK
     Dates: start: 20081024
  2. NPLATE [Suspect]
     Dosage: 160 A?G/KG, UNK
     Dates: start: 20081030
  3. NPLATE [Suspect]
     Dosage: 160 A?G/KG, UNK
     Dates: start: 20081107
  4. NPLATE [Suspect]
     Dosage: 85 A?G/KG, UNK
     Dates: start: 20081201
  5. NPLATE [Suspect]
     Dosage: 160 A?G/KG, UNK
     Dates: start: 20081210
  6. NPLATE [Suspect]
     Dosage: 160 A?G/KG, UNK
     Dates: start: 20081212
  7. NPLATE [Suspect]
     Dosage: 80 A?G/KG, UNK
     Dates: start: 20090102
  8. NPLATE [Suspect]
     Dosage: 80 A?G/KG, UNK
     Dates: start: 20090109
  9. NPLATE [Suspect]
     Dosage: 80 A?G/KG, UNK
     Dates: start: 20090116
  10. NPLATE [Suspect]
     Dosage: 40 A?G/KG, UNK
     Dates: start: 20090123
  11. NPLATE [Suspect]
     Dosage: 40 A?G/KG, UNK
     Dates: start: 20090130
  12. NPLATE [Suspect]
     Dosage: 40 A?G/KG, UNK
     Dates: start: 20100206
  13. NPLATE [Suspect]
     Dosage: 40 A?G/KG, UNK
     Dates: start: 20090213
  14. NPLATE [Suspect]
     Dosage: 40 A?G/KG, UNK
     Dates: start: 20090220
  15. NPLATE [Suspect]
     Dosage: 40 A?G/KG, UNK
     Dates: start: 20090227
  16. NPLATE [Suspect]
     Dosage: 40 A?G/KG, UNK
     Dates: start: 20090306
  17. NPLATE [Suspect]
     Dosage: 40 A?G/KG, UNK
     Dates: start: 20090313
  18. NPLATE [Suspect]
     Dosage: 40 A?G/KG, UNK
     Dates: start: 20090327
  19. NPLATE [Suspect]
     Dosage: 40 A?G/KG, UNK
     Dates: start: 20090101
  20. NPLATE [Suspect]
     Dosage: 40 A?G/KG, UNK
     Dates: start: 20090410
  21. NPLATE [Suspect]
     Dosage: 40 A?G/KG, UNK
     Dates: start: 20090417
  22. NPLATE [Suspect]
     Dosage: 40 A?G/KG, UNK
     Dates: start: 20090424
  23. NPLATE [Suspect]
     Dosage: 40 A?G/KG, UNK
     Dates: start: 20090501
  24. NPLATE [Suspect]
     Dosage: 40 A?G/KG, UNK
     Dates: start: 20090508
  25. NPLATE [Suspect]
     Dosage: 40 A?G/KG, UNK
     Dates: start: 20090515
  26. NPLATE [Suspect]
     Dosage: 40 A?G/KG, UNK
     Dates: start: 20090522
  27. NPLATE [Suspect]
     Dosage: 40 A?G/KG, UNK
     Dates: start: 20090522
  28. NPLATE [Suspect]
     Dosage: 40 A?G/KG, UNK
     Dates: start: 20090529
  29. NPLATE [Suspect]
     Dosage: 40 A?G/KG, UNK
     Dates: start: 20090529
  30. NPLATE [Suspect]
     Dosage: 40 A?G/KG, UNK
     Dates: start: 20090605
  31. NPLATE [Suspect]
     Dosage: 40 A?G/KG, UNK
     Dates: start: 20090605
  32. NPLATE [Suspect]
     Dosage: 60 A?G/KG, UNK
     Dates: start: 20090612
  33. NPLATE [Suspect]
     Dosage: 60 A?G/KG, UNK
     Dates: start: 20090612
  34. NPLATE [Suspect]
     Dosage: 0.12 ML, UNK
     Dates: start: 20090619
  35. NPLATE [Suspect]
     Dosage: .12 ML, UNK
     Dates: start: 20090626
  36. NPLATE [Suspect]
  37. LOSARTAN [Concomitant]
     Indication: PRODUCT USED FOR UNKNOWN INDICATION
     Dosage: UNK
  38. LOSARTAN [Concomitant]
     Dosage: UNK
  39. ATENOLOL [Concomitant]
     Indication: PRODUCT USED FOR UNKNOWN INDICATION
     Dosage: 50 UNK, UNK
     Dates: start: 20100917
  40. ATENOLOL [Concomitant]
     Dosage: 50 UNK, UNK
     Dates: start: 20101022
  41. LASIX [Concomitant]
     Indication: PRODUCT USED FOR UNKNOWN INDICATION
     Dosage: 20 UNK, PRN
     Dates: start: 20100917
  42. LASIX [Concomitant]
     Dosage: 20 UNK, PRN
     Dates: start: 20101022
  43. ASPIRIN [Concomitant]
     Indication: PRODUCT USED FOR UNKNOWN INDICATION
     Dosage: UNK
     Dates: start: 20100917
  44. ASPIRIN [Concomitant]
     Dosage: UNK
     Dates: start: 20101022
  45. FINASTERIDE [Concomitant]
     Indication: PRODUCT USED FOR UNKNOWN INDICATION
     Dosage: 5 MG, UNK
     Dates: start: 20100917
  46. FINASTERIDE [Concomitant]
     Dosage: 5 MG, UNK
     Dates: start: 20101022
  47. FENOFIBRATE [Concomitant]
     Indication: PRODUCT USED FOR UNKNOWN INDICATION
     Dosage: 200 UNK, UNK
     Dates: start: 20100917
  48. FENOFIBRATE [Concomitant]
     Dosage: 200 UNK, UNK
     Dates: start: 20101022
  49. ALTOSEC [Concomitant]
     Indication: PRODUCT USED FOR UNKNOWN INDICATION
     Dosage: 20 UNK, QD
     Dates: start: 20100917
  50. ALTOSEC [Concomitant]
     Dosage: 20 UNK, QD
     Dates: start: 20101022

REACTIONS (10)
  - ANAEMIA [None]
  - BONE MARROW DISORDER [None]
  - CYTOGENETIC ANALYSIS ABNORMAL [None]
  - INTERVERTEBRAL DISC DEGENERATION [None]
  - MACROCYTOSIS [None]
  - MARROW HYPERPLASIA [None]
  - NEUROPATHY PERIPHERAL [None]
  - PLATELET COUNT INCREASED [None]
  - SYNCOPE [None]
  - THROMBOCYTOPENIA [None]
